FAERS Safety Report 13660747 (Version 20)
Quarter: 2019Q2

REPORT INFORMATION
  Report Type: Report from Study
  Country: CA (occurrence: CA)
  Receive Date: 20170616
  Receipt Date: 20190430
  Transmission Date: 20190711
  Serious: Yes (Death, Hospitalization, Other)
  Sender: FDA-Public Use
  Company Number: PHHY2014CA143631

PATIENT
  Age: 70 Year
  Sex: Male

DRUGS (23)
  1. COVERSYL [Concomitant]
     Active Substance: PERINDOPRIL
     Dosage: 6 MG, QD
     Route: 065
  2. SANDOSTATIN LAR DEPOT [Suspect]
     Active Substance: OCTREOTIDE ACETATE
     Dosage: 30 MG, Q3W (EVERY 3 WEEKS)
     Route: 030
     Dates: start: 20160218
  3. SANDOSTATIN LAR DEPOT [Suspect]
     Active Substance: OCTREOTIDE ACETATE
     Dosage: 60 MG, Q3W (EVERY THREE WEEKS)
     Route: 030
  4. COVERSYL [Concomitant]
     Active Substance: PERINDOPRIL
     Dosage: 8 MG, QD
     Route: 065
     Dates: start: 20180404
  5. ZOFRAN [Concomitant]
     Active Substance: ONDANSETRON HYDROCHLORIDE
     Indication: PRODUCT USED FOR UNKNOWN INDICATION
     Dosage: 4 MG, UNK
     Route: 048
  6. GRAVOL [Concomitant]
     Active Substance: DIMENHYDRINATE
     Indication: PRODUCT USED FOR UNKNOWN INDICATION
     Dosage: 50 MG, PRN
     Route: 048
  7. AMLODIPINE [Suspect]
     Active Substance: AMLODIPINE BESYLATE
     Indication: HYPERTENSION
     Dosage: 5 MG, QD
     Route: 065
  8. TECTA [Concomitant]
     Active Substance: PANTOPRAZOLE MAGNESIUM
     Indication: PRODUCT USED FOR UNKNOWN INDICATION
     Dosage: 40 MG, BID
     Route: 065
     Dates: start: 201611
  9. MOTILIUM [Concomitant]
     Active Substance: DOMPERIDONE
     Indication: PRODUCT USED FOR UNKNOWN INDICATION
     Dosage: UNK UNK, QID
     Route: 065
     Dates: start: 201612
  10. SUCRALFATE. [Concomitant]
     Active Substance: SUCRALFATE
     Indication: PRODUCT USED FOR UNKNOWN INDICATION
     Dosage: 1 G, QID
     Route: 065
     Dates: start: 201612
  11. GABAPENTIN. [Concomitant]
     Active Substance: GABAPENTIN
     Indication: PRODUCT USED FOR UNKNOWN INDICATION
     Dosage: 50 MG, BID
     Route: 065
     Dates: start: 201612
  12. COVERSYL [Concomitant]
     Active Substance: PERINDOPRIL
     Dosage: UNK UNK, QD
     Route: 065
     Dates: start: 20180227
  13. SANDOSTATIN LAR DEPOT [Suspect]
     Active Substance: OCTREOTIDE ACETATE
     Dosage: 40 MG, Q3W (EVERY THREE WEEKS)
     Route: 030
  14. TECTA [Concomitant]
     Active Substance: PANTOPRAZOLE MAGNESIUM
     Dosage: 40 MG, QD
     Route: 065
     Dates: start: 20180816
  15. SUCRALFATE. [Concomitant]
     Active Substance: SUCRALFATE
     Dosage: 1 G, QID
     Route: 065
     Dates: start: 20180816
  16. COVERSYL [Concomitant]
     Active Substance: PERINDOPRIL
     Dosage: 4 MG, QD
     Route: 048
     Dates: start: 20180110
  17. CANNABIS [Concomitant]
     Active Substance: CANNABIS SATIVA SUBSP. INDICA TOP
     Indication: PRODUCT USED FOR UNKNOWN INDICATION
     Dosage: 0.7 CC
     Route: 058
     Dates: start: 20190319
  18. VERSED [Concomitant]
     Active Substance: MIDAZOLAM HYDROCHLORIDE
     Indication: PRODUCT USED FOR UNKNOWN INDICATION
     Dosage: 1 MG, UNK
     Route: 058
     Dates: start: 20190410
  19. SANDOSTATIN [Suspect]
     Active Substance: OCTREOTIDE ACETATE
     Indication: NEUROENDOCRINE TUMOUR
     Dosage: ONCE/SINGLE (TEST DOSE)
     Route: 058
     Dates: start: 20141022, end: 20141022
  20. PAZOPANIB [Suspect]
     Active Substance: PAZOPANIB
     Indication: PRODUCT USED FOR UNKNOWN INDICATION
     Dosage: 4 DF, QD (4 TABLETS OF 200 MG ONCE A DAY ONE HOUR BEFORE OR ONE HOUR AFTER THE MEAL IN THE MORNING)
     Route: 065
  21. SANDOSTATIN LAR DEPOT [Suspect]
     Active Substance: OCTREOTIDE ACETATE
     Indication: NEUROENDOCRINE TUMOUR
     Dosage: 30 MG, QMO (EVERY 4 WEEKS))
     Route: 030
     Dates: start: 20141029
  22. AMLODIPINE [Suspect]
     Active Substance: AMLODIPINE BESYLATE
     Dosage: 2.5 MG, QD
     Route: 065
     Dates: start: 20180816
  23. COVERSYL [Concomitant]
     Active Substance: PERINDOPRIL
     Indication: HYPERTENSION
     Dosage: 2 MG, QD
     Route: 065

REACTIONS (54)
  - Increased appetite [Recovering/Resolving]
  - Malaise [Unknown]
  - Flatulence [Unknown]
  - Headache [Unknown]
  - Diarrhoea [Unknown]
  - Injection site induration [Unknown]
  - Ill-defined disorder [Fatal]
  - Nephrolithiasis [Unknown]
  - Loss of consciousness [Unknown]
  - Heart rate decreased [Unknown]
  - Frequent bowel movements [Unknown]
  - Vomiting [Not Recovered/Not Resolved]
  - Decreased appetite [Unknown]
  - Needle issue [Unknown]
  - Back pain [Unknown]
  - Fall [Unknown]
  - Bone lesion [Unknown]
  - Body temperature decreased [Unknown]
  - Rhinorrhoea [Unknown]
  - Benign bone neoplasm [Unknown]
  - Dizziness [Recovering/Resolving]
  - Drug ineffective [Unknown]
  - Abdominal pain [Recovered/Resolved]
  - Blood pressure systolic increased [Unknown]
  - Haematuria [Unknown]
  - Flushing [Not Recovered/Not Resolved]
  - Blood pressure diastolic decreased [Unknown]
  - Cough [Unknown]
  - Blood pressure diastolic increased [Unknown]
  - Abdominal discomfort [Unknown]
  - Nausea [Unknown]
  - Injection site swelling [Unknown]
  - Inappropriate schedule of product administration [Unknown]
  - Blood pressure increased [Unknown]
  - Arthralgia [Unknown]
  - Productive cough [Unknown]
  - Syncope [Unknown]
  - Blood chromogranin A increased [Unknown]
  - Musculoskeletal chest pain [Unknown]
  - Faeces pale [Unknown]
  - Asthenia [Unknown]
  - Malignant neoplasm progression [Unknown]
  - Paraesthesia [Unknown]
  - Hair colour changes [Unknown]
  - Weight decreased [Unknown]
  - Anaemia [Unknown]
  - Erythema [Unknown]
  - Hot flush [Recovering/Resolving]
  - Platelet count abnormal [Unknown]
  - Lung neoplasm [Unknown]
  - Fatigue [Unknown]
  - Steatorrhoea [Unknown]
  - Feeling hot [Unknown]
  - Cholelithiasis [Unknown]

NARRATIVE: CASE EVENT DATE: 2014
